FAERS Safety Report 8286511-X (Version None)
Quarter: 2012Q2

REPORT INFORMATION
  Report Type: 
  Country: None (occurrence: None)
  Receive Date: 20120416
  Receipt Date: 20120413
  Transmission Date: 20120825
  Serious: Yes (Other)
  Sender: FDA-Public Use
  Company Number: JP-PFIZER INC-2012088589

PATIENT

DRUGS (1)
  1. ZOLOFT [Suspect]
     Dosage: 87.5 MG/DAY
     Route: 048

REACTIONS (1)
  - LOSS OF CONSCIOUSNESS [None]
